FAERS Safety Report 23829355 (Version 1)
Quarter: 2024Q2

REPORT INFORMATION
  Report Type: Report from Study
  Country: US (occurrence: US)
  Receive Date: 20240508
  Receipt Date: 20240508
  Transmission Date: 20240716
  Serious: Yes (Other)
  Sender: FDA-Public Use
  Company Number: US-ABBVIE-5745066

PATIENT
  Age: 28 Year
  Sex: Female

DRUGS (1)
  1. HUMIRA [Suspect]
     Active Substance: ADALIMUMAB
     Indication: Hidradenitis
     Dosage: FORM STRENGTH: 40MG?CITRATE FREE PEN
     Route: 058
     Dates: start: 20230705

REACTIONS (2)
  - Uterine leiomyoma [Unknown]
  - Endometriosis [Unknown]

NARRATIVE: CASE EVENT DATE: 20240425
